FAERS Safety Report 9064362 (Version 1)
Quarter: 2013Q1

REPORT INFORMATION
  Report Type: Spontaneous
  Country: US (occurrence: US)
  Receive Date: 20130213
  Receipt Date: 20130213
  Transmission Date: 20140127
  Serious: Yes (Hospitalization)
  Sender: FDA-Public Use
  Company Number: US-BIOMARINAP-US-2013-100232

PATIENT
  Sex: Female
  Weight: 47.62 kg

DRUGS (3)
  1. KUVAN [Suspect]
     Indication: PHENYLKETONURIA
     Dosage: 700 MG, QD
     Route: 048
     Dates: start: 2010
  2. KUVAN [Suspect]
     Dosage: 900 MG, QD
     Route: 048
     Dates: start: 20121019
  3. KEPPRA [Concomitant]
     Indication: CONVULSION
     Dosage: 3 ML, BID
     Route: 048
     Dates: start: 2010

REACTIONS (1)
  - Convulsion [Not Recovered/Not Resolved]
